FAERS Safety Report 14692212 (Version 1)
Quarter: 2018Q1

REPORT INFORMATION
  Report Type: Spontaneous
  Country: CA (occurrence: CA)
  Receive Date: 20180329
  Receipt Date: 20180329
  Transmission Date: 20180509
  Serious: Yes (Death, Other)
  Sender: FDA-Public Use
  Company Number: CA-UCBSA-2018012038

PATIENT
  Age: 27 Year
  Sex: Female

DRUGS (17)
  1. KETAMINE HCL [Suspect]
     Active Substance: KETAMINE HYDROCHLORIDE
     Indication: STATUS EPILEPTICUS
     Dosage: UNK
     Route: 030
  2. MAGNESIUM [Suspect]
     Active Substance: MAGNESIUM
     Indication: PRODUCT USED FOR UNKNOWN INDICATION
     Dosage: POWDER FOR SOLUTION DIALYSIS
  3. CLOBAZAM [Suspect]
     Active Substance: CLOBAZAM
     Indication: STATUS EPILEPTICUS
     Dosage: UNK
  4. DEXAMETHASONE. [Suspect]
     Active Substance: DEXAMETHASONE
     Indication: STATUS EPILEPTICUS
     Dosage: UNK
  5. MAGNESIUM SULFATE. [Suspect]
     Active Substance: MAGNESIUM SULFATE
     Indication: STATUS EPILEPTICUS
     Dosage: UNK
  6. PENTOBARBITAL. [Suspect]
     Active Substance: PENTOBARBITAL
     Indication: STATUS EPILEPTICUS
     Dosage: UNK
  7. PROPOFOL. [Suspect]
     Active Substance: PROPOFOL
     Indication: STATUS EPILEPTICUS
     Dosage: UNK
  8. MIDAZOLAM [Suspect]
     Active Substance: MIDAZOLAM HYDROCHLORIDE
     Indication: STATUS EPILEPTICUS
     Dosage: UNK
     Route: 030
  9. VIMPAT [Suspect]
     Active Substance: LACOSAMIDE
     Indication: OFF LABEL USE
  10. KEPPRA [Suspect]
     Active Substance: LEVETIRACETAM
     Indication: STATUS EPILEPTICUS
     Dosage: UNK
  11. VALPROIC ACID. [Suspect]
     Active Substance: VALPROIC ACID
     Indication: STATUS EPILEPTICUS
     Dosage: UNK
  12. FORANE [Suspect]
     Active Substance: ISOFLURANE
     Indication: OFF LABEL USE
  13. OXCARBAZEPINE. [Suspect]
     Active Substance: OXCARBAZEPINE
     Indication: PRODUCT USED FOR UNKNOWN INDICATION
  14. KEPPRA [Suspect]
     Active Substance: LEVETIRACETAM
     Indication: OFF LABEL USE
  15. TOPIRAMATE. [Suspect]
     Active Substance: TOPIRAMATE
     Indication: STATUS EPILEPTICUS
     Dosage: UNK
  16. FORANE [Suspect]
     Active Substance: ISOFLURANE
     Indication: STATUS EPILEPTICUS
     Dosage: LIQUID INHALATION
  17. VIMPAT [Suspect]
     Active Substance: LACOSAMIDE
     Indication: STATUS EPILEPTICUS
     Dosage: UNK

REACTIONS (9)
  - Metabolic acidosis [Fatal]
  - Status epilepticus [Fatal]
  - Off label use [Unknown]
  - Gene mutation [Fatal]
  - Shock [Fatal]
  - Blood creatine phosphokinase increased [Fatal]
  - Mitochondrial DNA mutation [Fatal]
  - Arrhythmia [Fatal]
  - Propofol infusion syndrome [Fatal]
